FAERS Safety Report 8150809-6 (Version None)
Quarter: 2012Q1

REPORT INFORMATION
  Report Type: 
  Country: None (occurrence: None)
  Receive Date: 20120220
  Receipt Date: 20120213
  Transmission Date: 20120608
  Serious: Yes (Other)
  Sender: FDA-Public Use
  Company Number: US-PFIZER INC-2012010088

PATIENT
  Sex: Female
  Weight: 57 kg

DRUGS (2)
  1. PREMARIN [Suspect]
     Indication: HORMONE LEVEL ABNORMAL
     Dosage: UNK, 1X/DAY
     Route: 048
     Dates: start: 20070101, end: 20080101
  2. THYROID TAB [Concomitant]
     Indication: HYPOTHYROIDISM
     Dosage: UNK

REACTIONS (4)
  - THROMBOSIS [None]
  - FIBROMA [None]
  - ABDOMINAL PAIN UPPER [None]
  - HEADACHE [None]
